FAERS Safety Report 5025543-1 (Version None)
Quarter: 2006Q2

REPORT INFORMATION
  Report Type: 
  Country: None (occurrence: None)
  Receive Date: 20060426
  Receipt Date: 20060201
  Transmission Date: 20061013
  Serious: Yes (Other)
  Sender: FDA-Public Use
  Company Number: 2006017925

PATIENT
  Age: 48 Year
  Sex: Female
  Weight: 136.0791 kg

DRUGS (5)
  1. LYRICA [Suspect]
     Indication: NERVE COMPRESSION
     Dosage: 150 MG (75 MG, 2 IN 1 D)
     Dates: start: 20060201
  2. LYRICA [Suspect]
     Indication: SPINAL OSTEOARTHRITIS
     Dosage: 150 MG (75 MG, 2 IN 1 D)
     Dates: start: 20060201
  3. HYZAAR [Concomitant]
  4. XANAX [Concomitant]
  5. CYMBALTA [Concomitant]

REACTIONS (3)
  - DIZZINESS [None]
  - SOMNOLENCE [None]
  - VOMITING [None]
